FAERS Safety Report 8408318-2 (Version None)
Quarter: 2012Q2

REPORT INFORMATION
  Report Type: 
  Country: None (occurrence: None)
  Receive Date: 20120323
  Receipt Date: 20111129
  Transmission Date: 20120825
  Serious: Yes (Other)
  Sender: FDA-Public Use
  Company Number: 163-21880-11114204

PATIENT
  Age: 77 Year
  Sex: Female
  Weight: 68.5 kg

DRUGS (13)
  1. VICODIN [Concomitant]
  2. REVLIMID [Suspect]
     Indication: MULTIPLE MYELOMA
     Dosage: 5 MG, DAYS 1-22 MONTHLY, PO ; 5 MG, Q 48HRS, 1-22 MONTHLY, PO
     Route: 048
     Dates: start: 20090701
  3. REVLIMID [Suspect]
     Indication: MULTIPLE MYELOMA
     Dosage: 5 MG, DAYS 1-22 MONTHLY, PO ; 5 MG, Q 48HRS, 1-22 MONTHLY, PO
     Route: 048
     Dates: start: 20111129
  4. BACTRIM SS (BACTRIM) [Concomitant]
  5. NITROGLYCERIN [Concomitant]
  6. METOPROLOL TARTRATE [Concomitant]
  7. WARFARIN SODIUM [Concomitant]
  8. ZOLPIDEM [Concomitant]
  9. ZAROSOLYN (METOLAZONE) [Concomitant]
  10. DEXAMETHASONE [Concomitant]
  11. FUROSEMIDE [Concomitant]
  12. DIAZEPAM [Concomitant]
  13. LEVOTHYROXINE SODIUM [Concomitant]

REACTIONS (1)
  - NEUTROPHIL COUNT DECREASED [None]
